FAERS Safety Report 8146422-7 (Version None)
Quarter: 2012Q1

REPORT INFORMATION
  Report Type: 
  Country: None (occurrence: None)
  Receive Date: 20120217
  Receipt Date: 20120207
  Transmission Date: 20120608
  Serious: Yes (Hospitalization)
  Sender: FDA-Public Use
  Company Number: FR-ROCHE-1037962

PATIENT
  Sex: Male

DRUGS (2)
  1. EVEROLIMUS [Suspect]
     Indication: TRANSPLANT REJECTION
     Route: 002
     Dates: start: 20110212, end: 20120204
  2. MYCOPHENOLATE MOFETIL (CELLCEPT) [Suspect]
     Indication: TRANSPLANT REJECTION
     Route: 002
     Dates: start: 20110208

REACTIONS (1)
  - TRANSPLANT REJECTION [None]
